FAERS Safety Report 11828760 (Version 1)
Quarter: 2015Q4

REPORT INFORMATION
  Report Type: Spontaneous
  Country: US (occurrence: US)
  Receive Date: 20151211
  Receipt Date: 20151211
  Transmission Date: 20160305
  Serious: No
  Sender: FDA-Public Use
  Company Number: US-BAYER-2015-487026

PATIENT
  Age: 71 Year
  Sex: Female
  Weight: 62.59 kg

DRUGS (3)
  1. CLARITIN [Suspect]
     Active Substance: LORATADINE
     Indication: NASOPHARYNGITIS
  2. CLARITIN [Suspect]
     Active Substance: LORATADINE
     Indication: URTICARIA
     Dosage: 1 DF, QD
     Route: 048
     Dates: start: 20151209, end: 20151209
  3. CLARITIN [Suspect]
     Active Substance: LORATADINE
     Indication: EAR PRURITUS

REACTIONS (2)
  - Dry mouth [Recovered/Resolved]
  - Product use issue [None]

NARRATIVE: CASE EVENT DATE: 20151209
